FAERS Safety Report 9356058 (Version 1)
Quarter: 2013Q2

REPORT INFORMATION
  Report Type: Spontaneous
  Country: FR (occurrence: FR)
  Receive Date: 20130619
  Receipt Date: 20130619
  Transmission Date: 20140414
  Serious: Yes (Hospitalization)
  Sender: FDA-Public Use
  Company Number: FR-TEVA-411692ISR

PATIENT
  Age: 6 Year
  Sex: Male

DRUGS (1)
  1. VALPROIC ACID [Suspect]
     Indication: CONVULSION
     Dosage: 450 MILLIGRAM DAILY; DOSAGE HAD BEEN GRADUALLY INCREASED OVER TIME
     Dates: start: 200907

REACTIONS (5)
  - Pancreatitis acute [Recovering/Resolving]
  - Ascites [Unknown]
  - Abnormal behaviour [Unknown]
  - Sleep disorder [Unknown]
  - Crying [Unknown]
